FAERS Safety Report 25802439 (Version 3)
Quarter: 2025Q4

REPORT INFORMATION
  Report Type: Spontaneous
  Country: US (occurrence: US)
  Receive Date: 20250915
  Receipt Date: 20251001
  Transmission Date: 20260117
  Serious: No
  Sender: MYLAN
  Company Number: US-MYLANLABS-2025M1075493

PATIENT
  Age: 53 Year
  Sex: Female
  Weight: 52.62 kg

DRUGS (4)
  1. ESTRADIOL TRANSDERMAL SYSTEM [Suspect]
     Active Substance: ESTRADIOL
     Indication: Menopausal symptoms
     Dosage: 0.05 MILLIGRAM, QD (PER DAY, TWICE WEEKLY, EVERY WEDNESDAY AND SUNDAY)
     Dates: start: 20250827
  2. ESTRADIOL TRANSDERMAL SYSTEM [Suspect]
     Active Substance: ESTRADIOL
     Indication: Pelvic pain
     Dosage: 0.05 MILLIGRAM, QD (PER DAY, TWICE WEEKLY, EVERY WEDNESDAY AND SUNDAY)
     Route: 062
     Dates: start: 20250827
  3. ESTRADIOL TRANSDERMAL SYSTEM [Suspect]
     Active Substance: ESTRADIOL
     Indication: Pain
     Dosage: 0.05 MILLIGRAM, QD (PER DAY, TWICE WEEKLY, EVERY WEDNESDAY AND SUNDAY)
     Route: 062
     Dates: start: 20250827
  4. ESTRADIOL TRANSDERMAL SYSTEM [Suspect]
     Active Substance: ESTRADIOL
     Indication: Atrophic vulvovaginitis
     Dosage: 0.05 MILLIGRAM, QD (PER DAY, TWICE WEEKLY, EVERY WEDNESDAY AND SUNDAY)
     Dates: start: 20250827

REACTIONS (17)
  - Back pain [Unknown]
  - Hot flush [Unknown]
  - Mood swings [Unknown]
  - Irritability [Unknown]
  - Arthralgia [Unknown]
  - Diarrhoea [Unknown]
  - Spinal disorder [Unknown]
  - Sciatica [Unknown]
  - Neuralgia [Unknown]
  - Dermal absorption impaired [Unknown]
  - Pyrexia [Unknown]
  - Menopausal symptoms [Unknown]
  - Withdrawal syndrome [Unknown]
  - Product substitution issue [Unknown]
  - Wrong technique in product usage process [Unknown]
  - Drug ineffective [Unknown]
  - Product quality issue [Unknown]

NARRATIVE: CASE EVENT DATE: 20250827
